FAERS Safety Report 19970470 (Version 1)
Quarter: 2021Q4

REPORT INFORMATION
  Report Type: Spontaneous
  Country: US (occurrence: US)
  Receive Date: 20211020
  Receipt Date: 20211020
  Transmission Date: 20220303
  Serious: No
  Sender: FDA-Public Use
  Company Number: US-CELGENE-USA-20211003817

PATIENT
  Sex: Female

DRUGS (4)
  1. REVLIMID [Suspect]
     Active Substance: LENALIDOMIDE
     Indication: Plasma cell myeloma in remission
     Dosage: 25 MILLIGRAM
     Route: 048
     Dates: start: 202008
  2. REVLIMID [Suspect]
     Active Substance: LENALIDOMIDE
     Dosage: 20MG-15MG
     Route: 048
     Dates: start: 202009
  3. REVLIMID [Suspect]
     Active Substance: LENALIDOMIDE
     Dosage: 10MG-5MG
     Route: 048
     Dates: start: 202103
  4. REVLIMID [Suspect]
     Active Substance: LENALIDOMIDE
     Dosage: 5 MILLIGRAM
     Route: 048
     Dates: start: 202108

REACTIONS (1)
  - Pulmonary mass [Unknown]
